FAERS Safety Report 12827827 (Version 1)
Quarter: 2016Q4

REPORT INFORMATION
  Report Type: Report from Study
  Country: US (occurrence: US)
  Receive Date: 20161006
  Receipt Date: 20161006
  Transmission Date: 20170207
  Serious: Yes (Other)
  Sender: FDA-Public Use
  Company Number: US-TAKEDA-2016TUS017871

PATIENT
  Age: 49 Year
  Sex: Female
  Weight: 73.47 kg

DRUGS (7)
  1. LEVOTHYROXINE. [Concomitant]
     Active Substance: LEVOTHYROXINE
     Dosage: UNK
     Route: 048
  2. VORTIOXETINE [Suspect]
     Active Substance: VORTIOXETINE
     Indication: DEPRESSION
     Dosage: UNK, QD
     Route: 048
     Dates: start: 20160810, end: 20160831
  3. VORTIOXETINE [Suspect]
     Active Substance: VORTIOXETINE
     Dosage: 5 MG, QD
     Route: 048
     Dates: start: 20160831
  4. ATIVAN [Concomitant]
     Active Substance: LORAZEPAM
     Indication: ANXIETY
     Dosage: 0.5 MG, UNK
     Route: 048
  5. MECLIZINE [Concomitant]
     Active Substance: MECLIZINE HYDROCHLORIDE
     Indication: VERTIGO
     Dosage: UNK
     Route: 048
  6. ASPIRIN                            /00002701/ [Concomitant]
     Active Substance: ASPIRIN
     Dosage: UNK
  7. VICTOZA [Concomitant]
     Active Substance: LIRAGLUTIDE
     Indication: DIABETES MELLITUS
     Dosage: UNK
     Route: 050

REACTIONS (7)
  - Depression [Recovering/Resolving]
  - Intentional product use issue [Recovered/Resolved]
  - Pneumonia [Recovered/Resolved]
  - Vomiting [Recovered/Resolved]
  - Anxiety [Recovering/Resolving]
  - Dry eye [Not Recovered/Not Resolved]
  - Nausea [Recovering/Resolving]

NARRATIVE: CASE EVENT DATE: 201608
